FAERS Safety Report 22386516 (Version 2)
Quarter: 2023Q2

REPORT INFORMATION
  Report Type: Report from Study
  Country: US (occurrence: US)
  Receive Date: 20230531
  Receipt Date: 20230616
  Transmission Date: 20230721
  Serious: Yes (Hospitalization)
  Sender: FDA-Public Use
  Company Number: US-ABBVIE-5184366

PATIENT
  Sex: Female

DRUGS (9)
  1. DUOPA [Suspect]
     Active Substance: CARBIDOPA\LEVODOPA
     Indication: Parkinson^s disease
     Dosage: DISCONTINUED IN 2020
     Route: 050
     Dates: start: 20200921
  2. DUOPA [Suspect]
     Active Substance: CARBIDOPA\LEVODOPA
     Route: 050
     Dates: start: 20201001
  3. ESCITALOPRAM OXALATE [Concomitant]
     Active Substance: ESCITALOPRAM OXALATE
     Indication: Product used for unknown indication
     Route: 048
  4. ESTRADIOL [Concomitant]
     Active Substance: ESTRADIOL
     Indication: Product used for unknown indication
     Route: 061
  5. PROGESTERONE [Concomitant]
     Active Substance: PROGESTERONE
     Indication: Product used for unknown indication
     Route: 048
  6. PRAMIPEXOLE DIHYDROCHLORIDE [Concomitant]
     Active Substance: PRAMIPEXOLE DIHYDROCHLORIDE
     Indication: Product used for unknown indication
     Route: 048
  7. GOCOVRI [Concomitant]
     Active Substance: AMANTADINE
     Indication: Product used for unknown indication
     Route: 048
  8. RYTARY [Concomitant]
     Active Substance: CARBIDOPA\LEVODOPA
     Indication: Product used for unknown indication
     Dosage: 23.75-95MG
     Route: 048
  9. APOKYN [Concomitant]
     Active Substance: APOMORPHINE HYDROCHLORIDE
     Indication: Product used for unknown indication
     Route: 058

REACTIONS (5)
  - Intentional medical device removal by patient [Unknown]
  - Embedded device [Unknown]
  - Device breakage [Unknown]
  - Device dislocation [Unknown]
  - Off label use [Unknown]
